FAERS Safety Report 12754902 (Version 2)
Quarter: 2016Q4

REPORT INFORMATION
  Report Type: Spontaneous
  Country: US (occurrence: US)
  Receive Date: 20160916
  Receipt Date: 20161021
  Transmission Date: 20170207
  Serious: Yes (Other)
  Sender: FDA-Public Use
  Company Number: US-INTERCEPT PHARMACEUTICALS, INC.-1057373

PATIENT
  Age: 53 Year
  Sex: Female
  Weight: 59.14 kg

DRUGS (7)
  1. MIRALAX [Concomitant]
     Active Substance: POLYETHYLENE GLYCOL 3350
  2. VITAMIN D3DIETARY SUPPLEMEN DIETARY SUPPLEMENT [Concomitant]
     Active Substance: ALPHA-TOCOPHEROL\CHOLECALCIFEROL
  3. BUDESONIDE EXTENDED RELEASE [Concomitant]
  4. ALEVE [Concomitant]
     Active Substance: NAPROXEN SODIUM
  5. FLONASE [Concomitant]
     Active Substance: FLUTICASONE PROPIONATE
  6. URSODIOL. [Concomitant]
     Active Substance: URSODIOL
  7. OCALIVA [Suspect]
     Active Substance: OBETICHOLIC ACID
     Indication: BILIARY CIRRHOSIS PRIMARY
     Route: 048
     Dates: start: 20160802, end: 201608

REACTIONS (9)
  - Hyperbilirubinaemia [Unknown]
  - Eye pruritus [Not Recovered/Not Resolved]
  - Bile duct stenosis [Unknown]
  - Jaundice [Unknown]
  - Pruritus [Unknown]
  - Hypersensitivity [Unknown]
  - Bile duct stone [Unknown]
  - Eye haemorrhage [Not Recovered/Not Resolved]
  - Carbohydrate antigen 19-9 increased [Unknown]

NARRATIVE: CASE EVENT DATE: 201608
